FAERS Safety Report 21811903 (Version 3)
Quarter: 2023Q1

REPORT INFORMATION
  Report Type: Spontaneous
  Country: US (occurrence: US)
  Receive Date: 20230103
  Receipt Date: 20230222
  Transmission Date: 20230418
  Serious: Yes (Hospitalization, Other)
  Sender: FDA-Public Use
  Company Number: US-PFIZER INC-PV202200133746

PATIENT
  Age: 49 Year
  Sex: Female

DRUGS (1)
  1. IBRANCE [Suspect]
     Active Substance: PALBOCICLIB
     Dosage: UNK
     Dates: start: 20211126, end: 20221107

REACTIONS (5)
  - Hip arthroplasty [Unknown]
  - Blood calcium decreased [Unknown]
  - Fluid intake reduced [Unknown]
  - Neoplasm progression [Unknown]
  - Fall [Unknown]

NARRATIVE: CASE EVENT DATE: 20221004
